FAERS Safety Report 7867485-X (Version None)
Quarter: 2011Q4

REPORT INFORMATION
  Report Type: 
  Country: None (occurrence: None)
  Receive Date: 20111028
  Receipt Date: 20111020
  Transmission Date: 20120403
  Serious: Yes (Hospitalization, Other)
  Sender: FDA-Public Use
  Company Number: US-AMGEN-USASP2011054485

PATIENT
  Sex: Female

DRUGS (3)
  1. BENADRYL [Concomitant]
  2. PROMACTA [Concomitant]
  3. NPLATE [Suspect]
     Indication: THROMBOCYTOPENIC PURPURA
     Dates: start: 20110701

REACTIONS (5)
  - AFFECT LABILITY [None]
  - PLATELET COUNT ABNORMAL [None]
  - HOSPITALISATION [None]
  - RASH [None]
  - PETECHIAE [None]
